FAERS Safety Report 6444346-4 (Version None)
Quarter: 2009Q4

REPORT INFORMATION
  Report Type: 
  Country: None (occurrence: None)
  Receive Date: 20091118
  Receipt Date: 20091112
  Transmission Date: 20100525
  Serious: Yes (Death)
  Sender: FDA-Public Use
  Company Number: TR-ELI_LILLY_AND_COMPANY-TR200911003320

PATIENT
  Sex: Male

DRUGS (2)
  1. HUMALOG MIX 75/25 [Suspect]
     Indication: DIABETES MELLITUS
     Dosage: 60 U, EACH MORNING
     Route: 058
     Dates: end: 20091017
  2. HUMALOG MIX 75/25 [Suspect]
     Dosage: 50 U, EACH EVENING
     Route: 058
     Dates: end: 20091017

REACTIONS (1)
  - CARDIAC FAILURE [None]
